FAERS Safety Report 5813776-3 (Version None)
Quarter: 2008Q3

REPORT INFORMATION
  Report Type: 
  Country: None (occurrence: None)
  Receive Date: 20080717
  Receipt Date: 20080709
  Transmission Date: 20090109
  Serious: Yes (Other)
  Sender: FDA-Public Use
  Company Number: PHHY2008GB11397

PATIENT
  Sex: Male

DRUGS (2)
  1. CLOZARIL [Suspect]
     Indication: SCHIZOPHRENIA
     Dosage: UNK
     Dates: start: 20080523
  2. ANTIPSYCHOTICS [Concomitant]
     Dosage: UNK

REACTIONS (5)
  - BUNDLE BRANCH BLOCK RIGHT [None]
  - ELECTROCARDIOGRAM QT PROLONGED [None]
  - ISCHAEMIA [None]
  - MYOCARDIAL ISCHAEMIA [None]
  - TACHYCARDIA [None]
